FAERS Safety Report 7306036-5 (Version None)
Quarter: 2011Q1

REPORT INFORMATION
  Report Type: 
  Country: None (occurrence: None)
  Receive Date: 20110222
  Receipt Date: 20110215
  Transmission Date: 20110831
  Serious: Yes (Other)
  Sender: FDA-Public Use
  Company Number: US-PFIZER INC-2010121196

PATIENT
  Sex: Female
  Weight: 79.365 kg

DRUGS (15)
  1. AMITRIPTYLINE [Concomitant]
     Dosage: 50 MG, DAILY
  2. CLARITIN [Concomitant]
     Indication: HYPERSENSITIVITY
     Dosage: UNK
  3. MELATONIN [Concomitant]
     Dosage: UNK, DAILY
  4. CHROMIUM [Concomitant]
     Dosage: UNK
  5. NEURONTIN [Suspect]
     Indication: FIBROMYALGIA
     Dosage: UNK
     Route: 048
     Dates: start: 20100917, end: 20100901
  6. DARVOCET [Concomitant]
     Dosage: 100/650 MG, UNK
  7. ZEGERID [Concomitant]
     Dosage: UNK
  8. MAGNESIUM [Concomitant]
     Dosage: UNK
  9. IBUPROFEN [Suspect]
     Indication: PAIN
     Dosage: UNK
  10. ROPINIROLE [Concomitant]
     Indication: RESTLESS LEGS SYNDROME
     Dosage: 0.25 MG, UNK
  11. POTASSIUM [Concomitant]
     Dosage: UNK
  12. CELEBREX [Suspect]
     Indication: PAIN
     Dosage: UNK
  13. NAPROXEN [Suspect]
     Indication: PAIN
     Dosage: UNK
  14. BACLOFEN [Concomitant]
     Dosage: 3 MG, AS NEEDED
  15. CASCARA SAGRADA [Concomitant]
     Indication: CONSTIPATION
     Dosage: UNK

REACTIONS (1)
  - HYPERSENSITIVITY [None]
